FAERS Safety Report 20219429 (Version 2)
Quarter: 2022Q2

REPORT INFORMATION
  Report Type: Report from Study
  Country: US (occurrence: US)
  Receive Date: 20211222
  Receipt Date: 20220414
  Transmission Date: 20220721
  Serious: No
  Sender: FDA-Public Use
  Company Number: US-KYOWAKIRIN-2021BKK021067

PATIENT

DRUGS (4)
  1. GRANISETRON [Suspect]
     Active Substance: GRANISETRON
     Indication: Prophylaxis of nausea and vomiting
     Dosage: UNK
     Route: 061
     Dates: start: 20210924
  2. GRANISETRON [Suspect]
     Active Substance: GRANISETRON
     Dosage: 1 PATCH Q 28 DAYS WITH CHEMO
     Route: 061
     Dates: start: 202110
  3. GRANISETRON [Suspect]
     Active Substance: GRANISETRON
     Dosage: 1 PATCH Q 28 DAYS WITH CHEMO
     Route: 061
     Dates: start: 202110
  4. POLYURETHANE [Suspect]
     Active Substance: POLYURETHANE
     Indication: Product used for unknown indication
     Dosage: UNK
     Route: 061

REACTIONS (5)
  - Hyperhidrosis [Unknown]
  - Product adhesion issue [Not Recovered/Not Resolved]
  - Urticaria [Recovering/Resolving]
  - Wrong technique in product usage process [Unknown]
  - Therapy partial responder [Unknown]

NARRATIVE: CASE EVENT DATE: 20210101
